FAERS Safety Report 12629492 (Version 3)
Quarter: 2016Q3

REPORT INFORMATION
  Report Type: Spontaneous
  Country: ES (occurrence: ES)
  Receive Date: 20160808
  Receipt Date: 20160926
  Transmission Date: 20161109
  Serious: Yes (Other)
  Sender: FDA-Public Use
  Company Number: ES-NOVOPROD-503454

PATIENT
  Age: 52 Year
  Sex: Female
  Weight: 52 kg

DRUGS (3)
  1. INSULATARD FLEXPEN [Suspect]
     Active Substance: INSULIN HUMAN
     Dosage: 23-0-20
     Route: 065
  2. INSULATARD FLEXPEN [Suspect]
     Active Substance: INSULIN HUMAN
     Dosage: 23-0-23 (MAXIMUM DOSE)
     Route: 065
  3. INSULATARD FLEXPEN [Suspect]
     Active Substance: INSULIN HUMAN
     Indication: TYPE 2 DIABETES MELLITUS
     Dosage: 26 U, QD (15 UNITS BEFORE BREAKFAST AND 11 UNITS BEFORE DINNER)
     Route: 065

REACTIONS (4)
  - Drug ineffective [Unknown]
  - Hypoglycaemia [Recovered/Resolved]
  - Diabetes mellitus inadequate control [Unknown]
  - Loss of consciousness [Recovered/Resolved]

NARRATIVE: CASE EVENT DATE: 20150411
